FAERS Safety Report 6057567-X (Version None)
Quarter: 2009Q1

REPORT INFORMATION
  Report Type: 
  Country: None (occurrence: None)
  Receive Date: 20090129
  Receipt Date: 20090121
  Transmission Date: 20090719
  Serious: Yes (Other)
  Sender: FDA-Public Use
  Company Number: US-JNJCH-2009002159

PATIENT
  Age: 63 Year
  Sex: Female
  Weight: 77.1 kg

DRUGS (1)
  1. VISINE-A [Suspect]
     Indication: EYE PRURITUS
     Dosage: TEXT:UNSPECIFIED ONCE A DAY AS DIRECTED
     Route: 047

REACTIONS (7)
  - APPLICATION SITE BURN [None]
  - EYE DISCHARGE [None]
  - EYE PAIN [None]
  - EYELID OEDEMA [None]
  - HEADACHE [None]
  - OCULAR HYPERAEMIA [None]
  - PRODUCT QUALITY ISSUE [None]
